FAERS Safety Report 4365066-6 (Version None)
Quarter: 2004Q2

REPORT INFORMATION
  Report Type: 
  Country: None (occurrence: None)
  Receive Date: 20040521
  Receipt Date: 20040507
  Transmission Date: 20050107
  Serious: Yes (Other)
  Sender: FDA-Public Use
  Company Number: DEU-2004-0000852

PATIENT
  Sex: Male

DRUGS (1)
  1. MORPHINE SULFATE INJ [Suspect]
     Indication: SCIATICA
     Dosage: 100 MG, SEE TEXT, SUBCUTANEOUS
     Route: 058

REACTIONS (7)
  - ECZEMA [None]
  - INFECTION [None]
  - INJECTION SITE NECROSIS [None]
  - MUSCULAR WEAKNESS [None]
  - PAIN EXACERBATED [None]
  - PARAESTHESIA [None]
  - RASH PUSTULAR [None]
